FAERS Safety Report 24796423 (Version 2)
Quarter: 2025Q1

REPORT INFORMATION
  Report Type: Spontaneous
  Country: TW (occurrence: TW)
  Receive Date: 20250101
  Receipt Date: 20250107
  Transmission Date: 20250409
  Serious: Yes (Disabling)
  Sender: ACCORD
  Company Number: TW-MLMSERVICE-20241220-PI280812-00249-4

PATIENT
  Age: 49 Year
  Sex: Female

DRUGS (3)
  1. FLUOROURACIL [Suspect]
     Active Substance: FLUOROURACIL
     Indication: Malignant anorectal neoplasm
  2. OXALIPLATIN [Suspect]
     Active Substance: OXALIPLATIN
     Indication: Malignant anorectal neoplasm
  3. LEUCOVORIN [Suspect]
     Active Substance: LEUCOVORIN\LEUCOVORIN CALCIUM
     Indication: Malignant anorectal neoplasm

REACTIONS (1)
  - Neuropathy peripheral [Unknown]
